FAERS Safety Report 5939559-1 (Version None)
Quarter: 2008Q4

REPORT INFORMATION
  Report Type: 
  Country: None (occurrence: None)
  Receive Date: 20081029
  Receipt Date: 20061015
  Transmission Date: 20090506
  Serious: Yes (Death, Other)
  Sender: FDA-Public Use
  Company Number: 100#03#2008-05035

PATIENT
  Age: 76 Year
  Sex: Female

DRUGS (6)
  1. CIPROFLOXACIN [Suspect]
     Indication: ARTHRITIS INFECTIVE
  2. FUSIDIC ACID [Suspect]
     Indication: ARTHRITIS INFECTIVE
  3. MEROPENEM (MEROPENEM) [Suspect]
     Indication: ARTHRITIS INFECTIVE
  4. PRISTINAMYCIN (PRISTINAMYCIN) [Suspect]
     Indication: ARTHRITIS INFECTIVE
  5. PRISTINAMYCIN (PRISTINAMYCIN) [Suspect]
     Indication: MULTIPLE-DRUG RESISTANCE
  6. VANCOMYCIN [Suspect]
     Indication: ARTHRITIS INFECTIVE

REACTIONS (2)
  - MULTIPLE-DRUG RESISTANCE [None]
  - MYOCARDIAL INFARCTION [None]
